FAERS Safety Report 16006005 (Version 1)
Quarter: 2019Q1

REPORT INFORMATION
  Report Type: Spontaneous
  Country: US (occurrence: US)
  Receive Date: 20190226
  Receipt Date: 20190226
  Transmission Date: 20190418
  Serious: Yes (Hospitalization)
  Sender: FDA-Public Use
  Company Number: None

PATIENT
  Age: 1 Year
  Sex: Male

DRUGS (4)
  1. DIGOXIN. [Concomitant]
     Active Substance: DIGOXIN
  2. ASPIRIN. [Concomitant]
     Active Substance: ASPIRIN
  3. REVATIO [Suspect]
     Active Substance: SILDENAFIL CITRATE
     Indication: HYPOPLASTIC LEFT HEART SYNDROME
     Route: 048
     Dates: start: 20180817
  4. SOTALOL. [Concomitant]
     Active Substance: SOTALOL

REACTIONS (1)
  - Aneurysm [None]

NARRATIVE: CASE EVENT DATE: 20190122
